FAERS Safety Report 7474438-2 (Version None)
Quarter: 2011Q2

REPORT INFORMATION
  Report Type: 
  Country: None (occurrence: None)
  Receive Date: 20110512
  Receipt Date: 20110202
  Transmission Date: 20111010
  Serious: No
  Sender: FDA-Public Use
  Company Number: US-BAYER-2011-011400

PATIENT
  Age: 49 Year
  Sex: Female

DRUGS (2)
  1. ACIPHEX [Concomitant]
  2. AVELOX [Suspect]
     Indication: SINUSITIS
     Dosage: 400 MG, ONCE
     Route: 048
     Dates: start: 20110126, end: 20110131

REACTIONS (2)
  - TENDON PAIN [None]
  - ABDOMINAL DISCOMFORT [None]
